FAERS Safety Report 24455768 (Version 2)
Quarter: 2024Q4

REPORT INFORMATION
  Report Type: Report from Study
  Country: JP (occurrence: JP)
  Receive Date: 20241017
  Receipt Date: 20241018
  Transmission Date: 20250114
  Serious: No
  Sender: ROCHE
  Company Number: JP-ROCHE-3502921

PATIENT
  Age: 63 Year
  Sex: Female
  Weight: 47.0 kg

DRUGS (7)
  1. RITUXAN [Suspect]
     Active Substance: RITUXIMAB
     Indication: Systemic scleroderma
     Route: 041
     Dates: start: 20230116, end: 20230116
  2. RITUXAN [Suspect]
     Active Substance: RITUXIMAB
     Route: 041
     Dates: start: 20230123, end: 20230123
  3. RITUXAN [Suspect]
     Active Substance: RITUXIMAB
     Route: 041
     Dates: start: 20230130, end: 20230130
  4. RITUXAN [Suspect]
     Active Substance: RITUXIMAB
     Route: 041
     Dates: start: 20230206, end: 20230206
  5. LIMAPROST [Concomitant]
     Active Substance: LIMAPROST
     Indication: Systemic scleroderma
     Route: 048
  6. VONOPRAZAN FUMARATE [Concomitant]
     Active Substance: VONOPRAZAN FUMARATE
     Indication: Systemic scleroderma
     Route: 048
     Dates: start: 20221118
  7. CELECOXIB [Concomitant]
     Active Substance: CELECOXIB
     Indication: Systemic scleroderma
     Route: 048
     Dates: start: 20221118

REACTIONS (3)
  - White blood cell count decreased [Unknown]
  - Neutrophil count decreased [Unknown]
  - Blood urea increased [Unknown]
